FAERS Safety Report 6644435-5 (Version None)
Quarter: 2010Q1

REPORT INFORMATION
  Report Type: 
  Country: None (occurrence: None)
  Receive Date: 20100317
  Receipt Date: 20100225
  Transmission Date: 20100710
  Serious: Yes (Death)
  Sender: FDA-Public Use
  Company Number: JP-SOLVAY-00310000849

PATIENT
  Age: 26 Year
  Sex: Female

DRUGS (9)
  1. FLUVOXAMINE MALEATE [Suspect]
     Indication: DEPRESSION
     Dosage: 25 MILLIGRAM(S) 50 MILLIGRAM(S) 100 MILLIGRAM(S)
     Route: 048
     Dates: start: 20090718, end: 20090724
  2. FLUVOXAMINE MALEATE [Suspect]
     Indication: DEPRESSION
     Dosage: 25 MILLIGRAM(S) 50 MILLIGRAM(S) 100 MILLIGRAM(S)
     Route: 048
     Dates: start: 20090725, end: 20091216
  3. FLUVOXAMINE MALEATE [Suspect]
     Indication: DEPRESSION
     Dosage: 25 MILLIGRAM(S) 50 MILLIGRAM(S) 100 MILLIGRAM(S)
     Route: 048
     Dates: start: 20091217, end: 20091226
  4. MIRTAZAPINE [Suspect]
     Indication: DEPRESSION
     Dosage: 15 MILLIGRAM(S) 30 MILLIGRAM(S) 45 MILLIGRAM(S)
     Route: 048
     Dates: start: 20091105, end: 20091125
  5. MIRTAZAPINE [Suspect]
     Indication: DEPRESSION
     Dosage: 15 MILLIGRAM(S) 30 MILLIGRAM(S) 45 MILLIGRAM(S)
     Route: 048
     Dates: start: 20091126, end: 20091202
  6. MIRTAZAPINE [Suspect]
     Indication: DEPRESSION
     Dosage: 15 MILLIGRAM(S) 30 MILLIGRAM(S) 45 MILLIGRAM(S)
     Route: 048
     Dates: start: 20091203, end: 20091226
  7. DEPAS (ETIZOLAM) [Suspect]
     Indication: INSOMNIA
     Dosage: 2 MILLIGRAM(S)
     Route: 048
     Dates: start: 20091203, end: 20091227
  8. PZC (PERPHENAZINE MALEATE) [Suspect]
     Indication: DEPRESSION
     Dosage: 6 MILLIGRAM(S)
     Route: 048
     Dates: start: 20091210, end: 20091226
  9. TENORMIN [Concomitant]

REACTIONS (1)
  - COMPLETED SUICIDE [None]
